FAERS Safety Report 8288822-0 (Version None)
Quarter: 2012Q2

REPORT INFORMATION
  Report Type: 
  Country: None (occurrence: None)
  Receive Date: 20120417
  Receipt Date: 20120405
  Transmission Date: 20120825
  Serious: No
  Sender: FDA-Public Use
  Company Number: US-BIOGENIDEC-2012BI012539

PATIENT
  Age: 39 Year
  Sex: Female

DRUGS (1)
  1. TYSABRI [Suspect]
     Indication: MULTIPLE SCLEROSIS
     Route: 042
     Dates: start: 20090917

REACTIONS (8)
  - SYNCOPE [None]
  - SINUSITIS [None]
  - ARTHRALGIA [None]
  - EAR INFECTION [None]
  - URINARY TRACT INFECTION [None]
  - CONTUSION [None]
  - TOOTH ABSCESS [None]
  - FALL [None]
